FAERS Safety Report 5318119-X (Version None)
Quarter: 2007Q2

REPORT INFORMATION
  Report Type: 
  Country: None (occurrence: None)
  Receive Date: 20070507
  Receipt Date: 20070424
  Transmission Date: 20071010
  Serious: Yes (Other)
  Sender: FDA-Public Use
  Company Number: TW-ROCHE-477374

PATIENT
  Age: 17 Year
  Sex: Male
  Weight: 65 kg

DRUGS (8)
  1. TAMIFLU [Suspect]
     Indication: INFLUENZA
     Route: 048
     Dates: start: 20061229, end: 20070101
  2. CLARITIN [Concomitant]
     Indication: INFLUENZA
     Route: 048
     Dates: start: 20061228, end: 20061231
  3. AMANTADINE HCL [Concomitant]
     Indication: INFLUENZA
     Route: 048
     Dates: start: 20061228, end: 20061231
  4. ZYRTEC [Concomitant]
     Indication: INFLUENZA
     Dosage: DOSING FREQUENCY REPORTED AS QHS, AT BEDTIME.
     Route: 048
     Dates: start: 20061228, end: 20061231
  5. PANADOL [Concomitant]
     Indication: INFLUENZA
     Route: 048
     Dates: start: 20061228, end: 20061231
  6. TOCLASE [Concomitant]
     Indication: INFLUENZA
     Route: 048
     Dates: start: 20061228, end: 20061231
  7. PSEUDOEPHEDRINE HCL [Concomitant]
     Indication: INFLUENZA
     Route: 048
     Dates: start: 20061228, end: 20061231
  8. BRUFEN [Concomitant]
     Indication: INFLUENZA
     Route: 048
     Dates: start: 20061228, end: 20061231

REACTIONS (4)
  - ABNORMAL BEHAVIOUR [None]
  - HALLUCINATION [None]
  - MENTAL DISORDER [None]
  - NERVOUS SYSTEM DISORDER [None]
